FAERS Safety Report 7544635-6 (Version None)
Quarter: 2011Q2

REPORT INFORMATION
  Report Type: 
  Country: None (occurrence: None)
  Receive Date: 20110614
  Receipt Date: 20110608
  Transmission Date: 20111010
  Serious: No
  Sender: FDA-Public Use
  Company Number: US-BIOGENIDEC-2011BI000926

PATIENT
  Age: 45 Year
  Sex: Female

DRUGS (1)
  1. TYSABRI [Suspect]
     Indication: MULTIPLE SCLEROSIS
     Route: 042
     Dates: start: 20100424, end: 20110515

REACTIONS (4)
  - BACK PAIN [None]
  - GAIT DISTURBANCE [None]
  - MUSCULAR WEAKNESS [None]
  - ARTHRALGIA [None]
